FAERS Safety Report 23070168 (Version 2)
Quarter: 2024Q2

REPORT INFORMATION
  Report Type: Spontaneous
  Country: US (occurrence: US)
  Receive Date: 20231016
  Receipt Date: 20240521
  Transmission Date: 20240715
  Serious: Yes (Hospitalization, Other)
  Sender: FDA-Public Use
  Company Number: US-PFIZER INC-202300320588

PATIENT
  Age: 63 Year
  Sex: Female
  Weight: 77.11 kg

DRUGS (2)
  1. GLYBURIDE [Suspect]
     Active Substance: GLYBURIDE
     Indication: Diabetes mellitus
     Dosage: UNK, 1X/DAY
     Dates: start: 202303, end: 202305
  2. GLYBURIDE [Suspect]
     Active Substance: GLYBURIDE
     Dosage: UNK
     Dates: start: 202304, end: 202306

REACTIONS (10)
  - Diabetic retinopathy [Not Recovered/Not Resolved]
  - Disease recurrence [Not Recovered/Not Resolved]
  - Muscle spasms [Not Recovered/Not Resolved]
  - Middle insomnia [Not Recovered/Not Resolved]
  - Neuropathy peripheral [Recovered/Resolved]
  - Condition aggravated [Recovered/Resolved]
  - Retinal detachment [Not Recovered/Not Resolved]
  - Blindness [Not Recovered/Not Resolved]
  - Macular degeneration [Not Recovered/Not Resolved]
  - Cataract [Not Recovered/Not Resolved]

NARRATIVE: CASE EVENT DATE: 20230401
